FAERS Safety Report 19515643 (Version 1)
Quarter: 2021Q3

REPORT INFORMATION
  Report Type: Spontaneous
  Country: US (occurrence: US)
  Receive Date: 20210709
  Receipt Date: 20210709
  Transmission Date: 20211014
  Serious: Yes (Other)
  Sender: FDA-Public Use
  Company Number: US-ELI_LILLY_AND_COMPANY-US202106014057

PATIENT
  Sex: Female

DRUGS (15)
  1. HUMALOG [Suspect]
     Active Substance: INSULIN LISPRO
     Dosage: 15?25 U WITH MEALS PLUS A SLIDING SCALE
     Route: 058
  2. HUMALOG [Suspect]
     Active Substance: INSULIN LISPRO
     Dosage: 15?25 U WITH MEALS PLUS A SLIDING SCALE
     Route: 058
  3. HUMALOG [Suspect]
     Active Substance: INSULIN LISPRO
     Indication: TYPE 2 DIABETES MELLITUS
     Dosage: 15?25 U WITH MEALS PLUS A SLIDING SCALE
     Route: 058
     Dates: start: 1991
  4. HUMALOG [Suspect]
     Active Substance: INSULIN LISPRO
     Dosage: 15?25 U WITH MEALS PLUS A SLIDING SCALE
     Route: 058
  5. HUMALOG [Suspect]
     Active Substance: INSULIN LISPRO
     Indication: TYPE 2 DIABETES MELLITUS
     Dosage: 15?25 U WITH MEALS PLUS A SLIDING SCALE
     Route: 058
     Dates: start: 1991
  6. LANTUS [Concomitant]
     Active Substance: INSULIN GLARGINE
     Indication: TYPE 2 DIABETES MELLITUS
     Dosage: UNK
     Dates: end: 20210625
  7. HUMALOG [Suspect]
     Active Substance: INSULIN LISPRO
     Indication: TYPE 2 DIABETES MELLITUS
     Dosage: 15?25 U WITH MEALS PLUS A SLIDING SCALE
     Route: 058
     Dates: start: 1991
  8. HUMALOG [Suspect]
     Active Substance: INSULIN LISPRO
     Dosage: 15?25 U WITH MEALS PLUS A SLIDING SCALE
     Route: 058
  9. HUMALOG [Suspect]
     Active Substance: INSULIN LISPRO
     Indication: TYPE 2 DIABETES MELLITUS
     Dosage: 15?25 U WITH MEALS PLUS A SLIDING SCALE
     Route: 058
     Dates: start: 1991
  10. HUMALOG [Suspect]
     Active Substance: INSULIN LISPRO
     Dosage: 15 U, TID
     Route: 058
  11. HUMALOG [Suspect]
     Active Substance: INSULIN LISPRO
     Dosage: 15?25 U WITH MEALS PLUS A SLIDING SCALE
     Route: 058
  12. HUMALOG [Suspect]
     Active Substance: INSULIN LISPRO
     Indication: TYPE 2 DIABETES MELLITUS
     Dosage: 15?25 U WITH MEALS PLUS A SLIDING SCALE
     Route: 058
     Dates: start: 1991
  13. HUMALOG [Suspect]
     Active Substance: INSULIN LISPRO
     Dosage: 15?25 U WITH MEALS PLUS A SLIDING SCALE
     Route: 058
  14. HUMALOG [Suspect]
     Active Substance: INSULIN LISPRO
     Dosage: 15 U, TID
     Route: 058
  15. HUMALOG [Suspect]
     Active Substance: INSULIN LISPRO
     Indication: TYPE 2 DIABETES MELLITUS
     Dosage: 15 U, PRN
     Route: 058
     Dates: start: 1991

REACTIONS (14)
  - Back pain [Not Recovered/Not Resolved]
  - Diarrhoea [Not Recovered/Not Resolved]
  - Abdominal pain upper [Not Recovered/Not Resolved]
  - Anger [Not Recovered/Not Resolved]
  - Blood glucose increased [Unknown]
  - Feeding disorder [Not Recovered/Not Resolved]
  - Vomiting [Not Recovered/Not Resolved]
  - Dizziness [Not Recovered/Not Resolved]
  - Fear [Not Recovered/Not Resolved]
  - Loss of consciousness [Not Recovered/Not Resolved]
  - Aspiration [Not Recovered/Not Resolved]
  - Abdominal distension [Not Recovered/Not Resolved]
  - Depressed mood [Not Recovered/Not Resolved]
  - Drug ineffective [Unknown]

NARRATIVE: CASE EVENT DATE: 2015
